FAERS Safety Report 9321351 (Version 1)
Quarter: 2013Q2

REPORT INFORMATION
  Report Type: Spontaneous
  Country: IT (occurrence: None)
  Receive Date: 20130528
  Receipt Date: 20130528
  Transmission Date: 20140414
  Serious: Yes (Death, Other)
  Sender: FDA-Public Use
  Company Number: 2013P1006130

PATIENT
  Age: 23 Year
  Sex: Female

DRUGS (5)
  1. MORPHINE [Suspect]
     Dates: end: 201104
  2. UNSPECIFIED INGREDIENT [Suspect]
     Dates: end: 201104
  3. 6-MAM [Suspect]
     Dates: end: 201104
  4. DEXTROMETHORPHAN [Suspect]
     Dates: end: 201104
  5. CAFFEINE [Suspect]
     Dates: end: 201104

REACTIONS (3)
  - Overdose [None]
  - Drug abuse [None]
  - Toxicity to various agents [None]
